FAERS Safety Report 10996629 (Version 1)
Quarter: 2015Q2

REPORT INFORMATION
  Report Type: Spontaneous
  Country: US (occurrence: None)
  Receive Date: 20150402
  Receipt Date: 20150402
  Transmission Date: 20150821
  Serious: Yes (Hospitalization)
  Sender: FDA-Public Use
  Company Number: 2014-US-001716

PATIENT
  Sex: Female

DRUGS (2)
  1. LITHIUM (LITHIUM CARBONATE) TABLET, 300MG [Concomitant]
     Active Substance: LITHIUM CARBONATE
  2. FAZACLO [Suspect]
     Active Substance: CLOZAPINE
     Indication: PSYCHOTIC DISORDER
     Dosage: UNK MG, QD, ORAL
     Route: 048

REACTIONS (1)
  - Eosinophilia [None]

NARRATIVE: CASE EVENT DATE: 201208
